FAERS Safety Report 11918311 (Version 1)
Quarter: 2016Q1

REPORT INFORMATION
  Report Type: Spontaneous
  Country: DE (occurrence: DE)
  Receive Date: 20160115
  Receipt Date: 20160115
  Transmission Date: 20160526
  Serious: Yes (Hospitalization)
  Sender: FDA-Public Use
  Company Number: DE-009507513-1601DEU004143

PATIENT
  Age: 84 Year
  Sex: Female

DRUGS (1)
  1. REMERGIL [Suspect]
     Active Substance: MIRTAZAPINE
     Dosage: UNK
     Route: 048

REACTIONS (2)
  - Blood glucose abnormal [Unknown]
  - Insomnia [Not Recovered/Not Resolved]
